FAERS Safety Report 6455745-9 (Version None)
Quarter: 2009Q4

REPORT INFORMATION
  Report Type: 
  Country: None (occurrence: None)
  Receive Date: 20091125
  Receipt Date: 20090827
  Transmission Date: 20100525
  Serious: No
  Sender: FDA-Public Use
  Company Number: US-ABBOTT-09P-163-0594141-00

PATIENT
  Sex: Male
  Weight: 67.192 kg

DRUGS (2)
  1. SIMCOR [Suspect]
     Indication: LOW DENSITY LIPOPROTEIN INCREASED
     Dosage: 500/20 MG INCREASED TO 500/20MG AT BEDTIME
     Route: 048
  2. SIMCOR [Suspect]
     Dosage: INCREASED TO 1000/20MG AT BEDTIME
     Route: 048

REACTIONS (2)
  - FLUSHING [None]
  - PARAESTHESIA [None]
